FAERS Safety Report 14163089 (Version 2)
Quarter: 2017Q4

REPORT INFORMATION
  Report Type: Spontaneous
  Country: US (occurrence: US)
  Receive Date: 20171106
  Receipt Date: 20171207
  Transmission Date: 20180321
  Serious: Yes (Hospitalization)
  Sender: FDA-Public Use
  Company Number: US-VIFOR (INTERNATIONAL) INC.-VIT-2017-12151

PATIENT
  Age: 64 Year
  Sex: Male

DRUGS (6)
  1. PLAVIX [Concomitant]
     Active Substance: CLOPIDOGREL BISULFATE
  2. MACROGOL 3350 [Concomitant]
     Active Substance: POLYETHYLENE GLYCOL 3350
  3. VELTASSA [Suspect]
     Active Substance: PATIROMER
     Indication: HYPERKALAEMIA
     Route: 048
     Dates: start: 20160819
  4. SODIUM BICARBONATE. [Concomitant]
     Active Substance: SODIUM BICARBONATE
  5. LOSARTAN. [Concomitant]
     Active Substance: LOSARTAN
  6. SENNOSIDE A+B [Concomitant]
     Active Substance: SENNOSIDES A AND B

REACTIONS (2)
  - Off label use [Unknown]
  - Metastatic neoplasm [Not Recovered/Not Resolved]

NARRATIVE: CASE EVENT DATE: 20160819
